FAERS Safety Report 15367481 (Version 1)
Quarter: 2018Q3

REPORT INFORMATION
  Report Type: Spontaneous
  Country: US (occurrence: US)
  Receive Date: 20180910
  Receipt Date: 20180910
  Transmission Date: 20181010
  Serious: Yes (Hospitalization, Other)
  Sender: FDA-Public Use
  Company Number: US-ROCHE-2182232

PATIENT
  Age: 74 Year
  Sex: Female
  Weight: 68.1 kg

DRUGS (2)
  1. ACTEMRA [Suspect]
     Active Substance: TOCILIZUMAB
     Route: 065
     Dates: start: 20180816
  2. ACTEMRA [Suspect]
     Active Substance: TOCILIZUMAB
     Indication: PRODUCT USED FOR UNKNOWN INDICATION
     Dosage: ONGOING: NO
     Route: 065
     Dates: start: 201803

REACTIONS (8)
  - Diarrhoea [Recovered/Resolved]
  - Erythema [Unknown]
  - Oesophageal infection [Recovered/Resolved]
  - Purpura [Recovered/Resolved]
  - Neutropenia [Recovered/Resolved]
  - Pulmonary oedema [Recovered/Resolved]
  - Drug hypersensitivity [Recovered/Resolved]
  - Loss of consciousness [Recovered/Resolved]

NARRATIVE: CASE EVENT DATE: 20180816
